FAERS Safety Report 18032683 (Version 2)
Quarter: 2020Q3

REPORT INFORMATION
  Report Type: Spontaneous
  Country: US (occurrence: US)
  Receive Date: 20200716
  Receipt Date: 20200724
  Transmission Date: 20201103
  Serious: No
  Sender: FDA-Public Use
  Company Number: US-UNITED THERAPEUTICS-UNT-2020-010427

PATIENT
  Age: 49 Year
  Sex: Female
  Weight: 103.86 kg

DRUGS (4)
  1. OPSUMIT [Concomitant]
     Active Substance: MACITENTAN
     Indication: PRODUCT USED FOR UNKNOWN INDICATION
     Dosage: UNK
     Route: 065
  2. REMODULIN [Suspect]
     Active Substance: TREPROSTINIL
     Indication: PULMONARY ARTERIAL HYPERTENSION
     Dosage: UNK UNK, CONTINUING
     Route: 041
     Dates: start: 20200313
  3. ORENITRAM [Suspect]
     Active Substance: TREPROSTINIL
     Indication: PRODUCT USED FOR UNKNOWN INDICATION
     Dosage: UNK
     Route: 048
  4. REMODULIN [Suspect]
     Active Substance: TREPROSTINIL
     Dosage: 0.060 ?G/KG, CONTINUING
     Route: 041

REACTIONS (9)
  - Device programming error [Unknown]
  - Accidental overdose [Unknown]
  - Dizziness [Unknown]
  - Incorrect drug administration rate [Unknown]
  - Diarrhoea [Unknown]
  - Malaise [Unknown]
  - Device malfunction [Unknown]
  - Blood pressure decreased [Unknown]
  - Nausea [Unknown]

NARRATIVE: CASE EVENT DATE: 2020
